FAERS Safety Report 15936119 (Version 4)
Quarter: 2019Q2

REPORT INFORMATION
  Report Type: Report from Study
  Country: US (occurrence: US)
  Receive Date: 20190208
  Receipt Date: 20190408
  Transmission Date: 20190711
  Serious: Yes (Death, Other)
  Sender: FDA-Public Use
  Company Number: US-ROCHE-2259850

PATIENT
  Age: 78 Year
  Sex: Male

DRUGS (17)
  1. VENETOCLAX. [Suspect]
     Active Substance: VENETOCLAX
     Indication: RICHTER^S SYNDROME
     Dosage: PARTICIPANTS RECEIVED A DOSE OF 20 MG OF ABT-199 ON WEEK 1 DAY 1, 50 MG ON DAY 2, 100 MG ON DAY 3, 2
     Route: 048
     Dates: start: 20180109
  2. CYCLOPHOSPHAMIDE. [Suspect]
     Active Substance: CYCLOPHOSPHAMIDE
     Indication: RICHTER^S SYNDROME
     Route: 042
  3. RITUXIMAB. [Suspect]
     Active Substance: RITUXIMAB
     Indication: RICHTER^S SYNDROME
     Dosage: DATE OF MOST RECENT DOSE OF RITUXIMAB PRIOR TO THE ONSET OF EVENTS: 17/APR/2018
     Route: 042
     Dates: start: 20171219
  4. ZYLOPRIM [Concomitant]
     Active Substance: ALLOPURINOL
  5. LEVAQUIN [Concomitant]
     Active Substance: LEVOFLOXACIN
  6. ATIVAN [Concomitant]
     Active Substance: LORAZEPAM
  7. DOXORUBICIN [Suspect]
     Active Substance: DOXORUBICIN
     Indication: RICHTER^S SYNDROME
     Dosage: ON DAYS 1-4 (TOTAL 40 MG/M2 OVER 96 HOURS)?DATE OF MOST RECENT DOSE OF DOXORUBICIN PRIOR TO THE ONSE
     Route: 042
     Dates: start: 20171219
  8. PREDNISONE. [Suspect]
     Active Substance: PREDNISONE
     Indication: RICHTER^S SYNDROME
     Dosage: ON DAYS 1-5
     Route: 048
  9. ZOVIRAX [Concomitant]
     Active Substance: ACYCLOVIR
  10. NORVASC [Concomitant]
     Active Substance: AMLODIPINE BESYLATE
  11. VINCRISTINE [Suspect]
     Active Substance: VINCRISTINE
     Indication: RICHTER^S SYNDROME
     Dosage: DATE OF MOST RECENT DOSE OF VINCRISTINE PRIOR TO THE ONSET OF EVENTS: 17/APR/2018
     Route: 042
     Dates: start: 20171219
  12. PERIDEX (UNITED STATES) [Concomitant]
  13. ETOPOSIDE. [Suspect]
     Active Substance: ETOPOSIDE
     Indication: RICHTER^S SYNDROME
     Dosage: DAYS 1-4 (TOTAL 200 MG/M2 OVER 96 HOURS)?DATE OF MOST RECENT DOSE OF ETOPOSIDE PRIOR TO THE ONSET OF
     Route: 042
     Dates: start: 20171219
  14. PROSCAR [Concomitant]
     Active Substance: FINASTERIDE
  15. TYLENOL [Concomitant]
     Active Substance: ACETAMINOPHEN
  16. TOPROL XL [Concomitant]
     Active Substance: METOPROLOL SUCCINATE
  17. DITROPAN XL [Concomitant]
     Active Substance: OXYBUTYNIN CHLORIDE

REACTIONS (5)
  - Haemorrhage intracranial [Fatal]
  - Cerebral haemorrhage [Fatal]
  - Coma [Not Recovered/Not Resolved]
  - Thrombocytopenia [Not Recovered/Not Resolved]
  - Contusion [Not Recovered/Not Resolved]

NARRATIVE: CASE EVENT DATE: 20181220
